FAERS Safety Report 21274835 (Version 1)
Quarter: 2022Q3

REPORT INFORMATION
  Report Type: Spontaneous
  Country: US (occurrence: US)
  Receive Date: 20220831
  Receipt Date: 20220831
  Transmission Date: 20221026
  Serious: No
  Sender: FDA-Public Use
  Company Number: US-AMERICAN REGENT INC-2021003408

PATIENT
  Age: 25 Year
  Sex: Female

DRUGS (2)
  1. FERRIC CARBOXYMALTOSE [Suspect]
     Active Substance: FERRIC CARBOXYMALTOSE
     Indication: Product used for unknown indication
     Dosage: UNK, SINGLE
     Route: 065
     Dates: start: 20211104, end: 20211104
  2. FERRIC CARBOXYMALTOSE [Suspect]
     Active Substance: FERRIC CARBOXYMALTOSE
     Dosage: UNK, SINGLE
     Route: 065
     Dates: start: 20211111, end: 20211111

REACTIONS (4)
  - Burning sensation [Unknown]
  - Muscle contracture [Unknown]
  - Swelling face [Unknown]
  - Ear swelling [Unknown]

NARRATIVE: CASE EVENT DATE: 20211101
